FAERS Safety Report 12832157 (Version 1)
Quarter: 2016Q4

REPORT INFORMATION
  Report Type: Report from Study
  Country: CA (occurrence: CA)
  Receive Date: 20161010
  Receipt Date: 20161010
  Transmission Date: 20170207
  Serious: Yes (Hospitalization, Other)
  Sender: FDA-Public Use
  Company Number: CA-AMGEN-CANSL2016136540

PATIENT
  Age: 29 Year
  Sex: Male

DRUGS (1)
  1. NPLATE [Suspect]
     Active Substance: ROMIPLOSTIM
     Indication: PRODUCT USED FOR UNKNOWN INDICATION
     Dosage: 500 MUG/1.0ML, UNK
     Route: 065
     Dates: start: 20151221

REACTIONS (6)
  - Headache [Unknown]
  - Viral infection [Unknown]
  - Platelet count abnormal [Unknown]
  - Bacterial infection [Unknown]
  - Abasia [Unknown]
  - Influenza [Unknown]

NARRATIVE: CASE EVENT DATE: 20161002
